FAERS Safety Report 4865712-4 (Version None)
Quarter: 2005Q4

REPORT INFORMATION
  Report Type: 
  Country: None (occurrence: None)
  Receive Date: 20051223
  Receipt Date: 20051108
  Transmission Date: 20060501
  Serious: Yes (Disabling, Other)
  Sender: FDA-Public Use
  Company Number: GBWYE121308NOV05

PATIENT
  Sex: Female

DRUGS (9)
  1. ENBREL [Suspect]
     Indication: RHEUMATOID ARTHRITIS
     Route: 058
     Dates: start: 20050901
  2. AMITRIPTYLINE [Concomitant]
  3. PREDNISOLONE [Concomitant]
  4. PREDNISOLONE [Concomitant]
  5. METHOTREXATE [Concomitant]
  6. ADCAL [Concomitant]
  7. TRANEXAMIC ACID [Concomitant]
     Indication: EPISTAXIS
     Dosage: AS REQUIRED
  8. FERROUS SULFATE TAB [Concomitant]
  9. CYCLOSPORINE [Concomitant]
     Dates: end: 20050101

REACTIONS (2)
  - FEELING ABNORMAL [None]
  - INSOMNIA [None]
